FAERS Safety Report 9346046 (Version 3)
Quarter: 2013Q3

REPORT INFORMATION
  Report Type: Report from Study
  Country: GB (occurrence: GB)
  Receive Date: 20130613
  Receipt Date: 20130808
  Transmission Date: 20140515
  Serious: Yes (Hospitalization)
  Sender: FDA-Public Use
  Company Number: PHFR2013GB003370

PATIENT
  Age: 63 Year
  Sex: Male

DRUGS (3)
  1. CLOZARIL [Suspect]
     Indication: SCHIZOPHRENIA
     Dosage: UNK
     Route: 048
     Dates: start: 20021018, end: 20130606
  2. CLOZARIL [Suspect]
     Dosage: 100 MG, UNK
     Route: 048
     Dates: start: 20130611
  3. CLOZARIL [Suspect]
     Dosage: UNK
     Dates: start: 20130614

REACTIONS (3)
  - Cerebrovascular accident [Unknown]
  - Malaise [Unknown]
  - Incorrect dose administered [Unknown]
